FAERS Safety Report 12893006 (Version 1)
Quarter: 2020Q3

REPORT INFORMATION
  Report Type: Report from Study
  Country: JP (occurrence: JP)
  Receive Date: 20161028
  Receipt Date: 20161028
  Transmission Date: 20201104
  Serious: Yes (Death, Hospitalization)
  Sender: FDA-Public Use
  Company Number: JP-ROCHE-1630667

PATIENT
  Age: 66 Year
  Sex: Male
  Weight: 47 kg

DRUGS (3)
  1. ALECTINIB. [Suspect]
     Active Substance: ALECTINIB
     Indication: SQUAMOUS CELL CARCINOMA OF LUNG
     Dosage: LAST DOSE ON 08/MAR/2015.
     Route: 048
     Dates: start: 20150304
  2. TS?1 [Suspect]
     Active Substance: GIMERACIL\OTERACIL\TEGAFUR
     Indication: SQUAMOUS CELL CARCINOMA OF LUNG
     Dosage: DOSAGE IS UNCERTAIN.?REPORTED AS TS?1 OD.?LAST DOSE ON 20/FEB/2015.
     Route: 048
  3. ALECTINIB. [Suspect]
     Active Substance: ALECTINIB
     Indication: SQUAMOUS CELL CARCINOMA OF LUNG
     Dosage: LAST DOSE ON 28/FEB/2015.
     Route: 048
     Dates: start: 20150221

REACTIONS (4)
  - Gastrointestinal haemorrhage [Recovered/Resolved]
  - Platelet count decreased [Recovered/Resolved]
  - Blood urea increased [Not Recovered/Not Resolved]
  - Hepatic function abnormal [Recovered/Resolved]

NARRATIVE: CASE EVENT DATE: 20150226
